FAERS Safety Report 10032672 (Version 1)
Quarter: 2014Q1

REPORT INFORMATION
  Report Type: Spontaneous
  Country: US (occurrence: US)
  Receive Date: 20140324
  Receipt Date: 20140324
  Transmission Date: 20141002
  Serious: No
  Sender: FDA-Public Use
  Company Number: US-009507513-1403USA010593

PATIENT
  Sex: Female

DRUGS (4)
  1. PEGINTRON [Suspect]
     Indication: HEPATITIS C
     Dosage: UNK, QW, ROUTE: INJECTION.
     Dates: start: 20120101, end: 20121101
  2. PEGINTRON [Suspect]
     Dosage: UNK
  3. REBETOL [Suspect]
     Indication: HEPATITIS C
     Dosage: UNK UNK, BID
     Route: 048
     Dates: start: 20120101, end: 20121101
  4. REBETOL [Suspect]
     Dosage: UNK
     Route: 048

REACTIONS (1)
  - Hepatitis C [Unknown]
